FAERS Safety Report 23439900 (Version 6)
Quarter: 2025Q2

REPORT INFORMATION
  Report Type: Spontaneous
  Country: US (occurrence: US)
  Receive Date: 20240124
  Receipt Date: 20250403
  Transmission Date: 20250716
  Serious: Yes (Hospitalization, Other)
  Sender: PFIZER
  Company Number: US-PFIZER INC-PV202400009900

PATIENT
  Age: 81 Year
  Sex: Female
  Weight: 69.4 kg

DRUGS (2)
  1. VYNDAMAX [Suspect]
     Active Substance: TAFAMIDIS
     Indication: Acquired ATTR amyloidosis
     Dosage: 61 MG, 1X/DAY
  2. VYNDAMAX [Suspect]
     Active Substance: TAFAMIDIS
     Dosage: 61 MG, 1X/DAY

REACTIONS (7)
  - Cerebrovascular accident [Unknown]
  - Impaired driving ability [Unknown]
  - Illness [Unknown]
  - Asthenia [Unknown]
  - Haemorrhage [Unknown]
  - Mental impairment [Unknown]
  - Anxiety [Unknown]
